FAERS Safety Report 12816738 (Version 1)
Quarter: 2016Q4

REPORT INFORMATION
  Report Type: Spontaneous
  Country: US (occurrence: US)
  Receive Date: 20161005
  Receipt Date: 20161005
  Transmission Date: 20170207
  Serious: No
  Sender: FDA-Public Use
  Company Number: None

PATIENT
  Age: 60 Year
  Sex: Male
  Weight: 96.75 kg

DRUGS (6)
  1. HYDROCHLOROTHIAZIDE. [Concomitant]
     Active Substance: HYDROCHLOROTHIAZIDE
  2. ASPIRIN. [Concomitant]
     Active Substance: ASPIRIN
  3. MULTI-VITAMIN [Concomitant]
     Active Substance: .ALPHA.-TOCOPHEROL ACETATE, DL-\ASCORBIC ACID\CYANOCOBALAMIN\FLUORIDE ION\FOLIC ACID\NIACIN\PYRIDOXINE\RIBOFLAVIN\THIAMINE\VITAMIN A\VITAMIN D
  4. CEFDINIR 300MG CAPSULE SANDOZ [Suspect]
     Active Substance: CEFDINIR
     Indication: SEASONAL ALLERGY
     Dosage: OTHER TWICE A DAY ORAL?20 CAPSULES
     Route: 048
     Dates: start: 20160913, end: 20160914
  5. ENALAPRIL [Concomitant]
     Active Substance: ENALAPRIL
  6. OMEPRAZOLE. [Concomitant]
     Active Substance: OMEPRAZOLE

REACTIONS (2)
  - Memory impairment [None]
  - Sensitivity of teeth [None]

NARRATIVE: CASE EVENT DATE: 20160914
